FAERS Safety Report 6343609-0 (Version None)
Quarter: 2009Q3

REPORT INFORMATION
  Report Type: 
  Country: None (occurrence: None)
  Receive Date: 20090908
  Receipt Date: 20090806
  Transmission Date: 20100115
  Serious: No
  Sender: FDA-Public Use
  Company Number: US-BAYER-200930190NA

PATIENT
  Age: 38 Year
  Sex: Male
  Weight: 79 kg

DRUGS (3)
  1. ULTRAVIST 300 [Suspect]
     Indication: COMPUTERISED TOMOGRAM ABDOMEN
     Dosage: TOTAL DAILY DOSE: 95 ML  UNIT DOSE: 100 ML
     Route: 042
     Dates: start: 20090806, end: 20090806
  2. PREMARA [Concomitant]
     Indication: DRUG USE FOR UNKNOWN INDICATION
  3. REDICAT [Concomitant]
     Indication: COMPUTERISED TOMOGRAM ABDOMEN

REACTIONS (1)
  - PRESYNCOPE [None]
